FAERS Safety Report 5236020-7 (Version None)
Quarter: 2007Q1

REPORT INFORMATION
  Report Type: 
  Country: None (occurrence: None)
  Receive Date: 20061208
  Receipt Date: 20060119
  Transmission Date: 20070707
  Serious: Yes (Other)
  Sender: FDA-Public Use
  Company Number: 2006UW00982

PATIENT
  Age: 57 Year
  Sex: Female

DRUGS (7)
  1. CRESTOR [Suspect]
     Indication: BLOOD CHOLESTEROL INCREASED
     Dosage: 10 MG DAILY PO
     Route: 048
     Dates: start: 20060101
  2. METFORMIN HCL [Concomitant]
  3. GLYBURIDE [Concomitant]
  4. LEVOTHROID [Concomitant]
  5. COZAAR [Concomitant]
  6. HERBAL SUPPLEMENTS [Concomitant]
  7. VITAMINS [Concomitant]

REACTIONS (2)
  - PRURITUS [None]
  - RESTLESS LEGS SYNDROME [None]
